FAERS Safety Report 25120792 (Version 1)
Quarter: 2025Q1

REPORT INFORMATION
  Report Type: Report from Study
  Country: US (occurrence: US)
  Receive Date: 20250325
  Receipt Date: 20250325
  Transmission Date: 20250409
  Serious: No
  Sender: SANDOZ
  Company Number: US-SANDOZ-SDZ2025US018379

PATIENT
  Age: 14 Year
  Sex: Male

DRUGS (2)
  1. OMNITROPE [Suspect]
     Active Substance: SOMATROPIN
     Indication: Short stature
     Dosage: 0.6 ML, QD ONCE DAILY
     Route: 058
     Dates: start: 20250310
  2. OMNITROPE [Suspect]
     Active Substance: SOMATROPIN
     Indication: Short stature
     Dosage: 0.6 ML, QD ONCE DAILY
     Route: 058
     Dates: start: 20250310

REACTIONS (4)
  - Injection site reaction [Recovered/Resolved]
  - Incorrect dose administered by device [Unknown]
  - Wrong technique in device usage process [Unknown]
  - Product preparation issue [Unknown]

NARRATIVE: CASE EVENT DATE: 20250313
